FAERS Safety Report 4551392-4 (Version None)
Quarter: 2005Q1

REPORT INFORMATION
  Report Type: 
  Country: None (occurrence: None)
  Receive Date: 20050113
  Receipt Date: 20050110
  Transmission Date: 20050727
  Serious: Yes (Other)
  Sender: FDA-Public Use
  Company Number: 200510279GDDC

PATIENT
  Age: 0 Year
  Sex: Female
  Weight: 0.5 kg

DRUGS (18)
  1. FUROSEMIDE [Suspect]
     Indication: RENAL FAILURE ACUTE
     Dosage: DOSE: 0.1-1; DOSE UNIT: MILLIGRAM PER KILOGRAM BODYWEIGHT PER HOUR
     Route: 042
     Dates: start: 20041107, end: 20041109
  2. FUROSEMIDE [Suspect]
     Indication: URINE OUTPUT DECREASED
     Dosage: DOSE: 0.1-1; DOSE UNIT: MILLIGRAM PER KILOGRAM BODYWEIGHT PER HOUR
     Route: 042
     Dates: start: 20041107, end: 20041109
  3. CEFOTAXIME [Concomitant]
     Indication: C-REACTIVE PROTEIN INCREASED
     Route: 042
     Dates: start: 20041019, end: 20041107
  4. CEFOTAXIME [Concomitant]
     Indication: INFECTION
     Route: 042
     Dates: start: 20041019, end: 20041107
  5. AMOXICILLIN [Concomitant]
     Indication: C-REACTIVE PROTEIN INCREASED
     Route: 042
     Dates: start: 20041019, end: 20041027
  6. AMOXICILLIN [Concomitant]
     Indication: INFECTION
     Route: 042
     Dates: start: 20041019, end: 20041027
  7. TEICOPLANIN [Concomitant]
     Indication: C-REACTIVE PROTEIN INCREASED
     Route: 042
     Dates: start: 20041024, end: 20041119
  8. TEICOPLANIN [Concomitant]
     Indication: INFECTION
     Route: 042
     Dates: start: 20041024, end: 20041119
  9. CAFFEINE CITRATE [Concomitant]
     Indication: TACHYPNOEA
     Route: 042
     Dates: start: 20041029
  10. GENTAMICIN [Concomitant]
     Indication: C-REACTIVE PROTEIN INCREASED
     Dosage: DOSE: 2.5 MG/KG 36 HRS
     Route: 042
     Dates: start: 20041102, end: 20041102
  11. GENTAMICIN [Concomitant]
     Indication: INFECTION
     Dosage: DOSE: 2.5 MG/KG 36 HRS
     Route: 042
     Dates: start: 20041102, end: 20041102
  12. FLUCLOXACILLIN [Concomitant]
     Indication: C-REACTIVE PROTEIN INCREASED
     Route: 042
     Dates: start: 20041105, end: 20041108
  13. FLUCLOXACILLIN [Concomitant]
     Indication: INFECTION
     Route: 042
     Dates: start: 20041105, end: 20041108
  14. FLUCONAZOLE [Concomitant]
     Indication: C-REACTIVE PROTEIN INCREASED
     Dosage: DOSE: 6 MG/KG Q48 HRS
     Route: 042
  15. FLUCONAZOLE [Concomitant]
     Indication: INFECTION
     Dosage: DOSE: 6 MG/KG Q48 HRS
     Route: 042
  16. DOPAMINE [Concomitant]
     Route: 042
  17. MORPHINE [Concomitant]
     Indication: LIFE SUPPORT
     Route: 042
  18. SODIUM CHLORIDE [Concomitant]
     Route: 048

REACTIONS (1)
  - RENAL TUBULAR ACIDOSIS [None]
